FAERS Safety Report 7880085-0 (Version None)
Quarter: 2011Q4

REPORT INFORMATION
  Report Type: 
  Country: None (occurrence: None)
  Receive Date: 20111101
  Receipt Date: 20111017
  Transmission Date: 20120403
  Serious: Yes (Other)
  Sender: FDA-Public Use
  Company Number: SA-WATSON-2011-17360

PATIENT
  Sex: Female

DRUGS (3)
  1. SOTALOL HCL [Suspect]
     Dosage: 160 MG BID AT 27 WEEKS
     Route: 048
  2. SOTALOL HCL [Suspect]
     Indication: TACHYCARDIA FOETAL
     Dosage: 80 MG TWICE A DAY AT 21WEEKS
     Route: 048
  3. SOTALOL HCL [Suspect]
     Dosage: 80 MG TWICE A DAY AT 21WEEKS THEN INCREASED TO 160 MG TID
     Route: 048

REACTIONS (3)
  - SUPRAVENTRICULAR TACHYCARDIA [None]
  - DIZZINESS [None]
  - FATIGUE [None]
